FAERS Safety Report 8570815-7 (Version None)
Quarter: 2012Q3

REPORT INFORMATION
  Report Type: 
  Country: None (occurrence: None)
  Receive Date: 20120806
  Receipt Date: 20120706
  Transmission Date: 20120928
  Serious: No
  Sender: FDA-Public Use
  Company Number: US-009507513-1207USA012447

PATIENT

DRUGS (1)
  1. NEXPLANON [Suspect]

REACTIONS (2)
  - PRODUCT QUALITY ISSUE [None]
  - INJURY ASSOCIATED WITH DEVICE [None]
